FAERS Safety Report 6759927-8 (Version None)
Quarter: 2010Q2

REPORT INFORMATION
  Report Type: 
  Country: None (occurrence: None)
  Receive Date: 20100608
  Receipt Date: 20100524
  Transmission Date: 20101027
  Serious: No
  Sender: FDA-Public Use
  Company Number: US-B.I. PHARMACEUTICALS,INC./RIDGEFIELD-2010-BP-04338BP

PATIENT
  Sex: Female

DRUGS (6)
  1. CATAPRES-TTS-1 [Suspect]
     Indication: HYPERTENSION
     Route: 061
  2. LISINOPRIL [Suspect]
  3. FUROSEMIDE [Concomitant]
  4. MINOXIDIL [Concomitant]
  5. DILTIAZEM [Concomitant]
  6. ACIPHEX [Concomitant]

REACTIONS (4)
  - BLOOD PRESSURE FLUCTUATION [None]
  - BLOOD PRESSURE INCREASED [None]
  - COUGH [None]
  - GASTROOESOPHAGEAL REFLUX DISEASE [None]
